FAERS Safety Report 6590259-7 (Version None)
Quarter: 2010Q1

REPORT INFORMATION
  Report Type: 
  Country: None (occurrence: None)
  Receive Date: 20100219
  Receipt Date: 20100217
  Transmission Date: 20100710
  Serious: Yes (Life-Threatening, Hospitalization)
  Sender: FDA-Public Use
  Company Number: US-BRACCO-002810

PATIENT
  Age: 60 Year
  Sex: Male
  Weight: 159 kg

DRUGS (7)
  1. VERSED [Concomitant]
     Route: 042
     Dates: start: 20090427
  2. FENTANYL-100 [Concomitant]
     Route: 065
     Dates: start: 20090427
  3. DILANTIN [Concomitant]
     Route: 065
     Dates: start: 20090427
  4. SUCCINYLCHOLINE CHLORIDE [Concomitant]
     Route: 065
     Dates: start: 20090427
  5. VANCOMYCIN [Concomitant]
     Route: 065
     Dates: start: 20090427
  6. PROHANCE [Suspect]
     Indication: COMPUTERISED TOMOGRAM
     Dosage: 12-15-ML ADMINISTERED
     Route: 037
     Dates: start: 20090427, end: 20090427
  7. PROHANCE [Suspect]
     Indication: MEDICAL DEVICE COMPLICATION
     Dosage: 12-15-ML ADMINISTERED
     Route: 037
     Dates: start: 20090427, end: 20090427

REACTIONS (12)
  - AGITATION [None]
  - BLOOD CREATININE INCREASED [None]
  - BLOOD UREA INCREASED [None]
  - BURNING SENSATION [None]
  - CONVULSION [None]
  - HYPERHIDROSIS [None]
  - HYPERTHERMIA [None]
  - LABORATORY TEST ABNORMAL [None]
  - LOSS OF CONSCIOUSNESS [None]
  - MUSCULAR WEAKNESS [None]
  - OFF LABEL USE [None]
  - PAIN [None]
